FAERS Safety Report 15659219 (Version 1)
Quarter: 2018Q4

REPORT INFORMATION
  Report Type: Spontaneous
  Country: GB (occurrence: GB)
  Receive Date: 20181127
  Receipt Date: 20181127
  Transmission Date: 20190205
  Serious: Yes (Life-Threatening, Hospitalization, Other)
  Sender: FDA-Public Use
  Company Number: GB-TEVA-162501ISR

PATIENT
  Sex: Female

DRUGS (1)
  1. MIRTAZAPINE. [Suspect]
     Active Substance: MIRTAZAPINE
     Route: 048

REACTIONS (6)
  - Acute kidney injury [Recovering/Resolving]
  - Sepsis [Recovering/Resolving]
  - Systemic inflammatory response syndrome [Recovering/Resolving]
  - Dermatitis exfoliative generalised [Recovering/Resolving]
  - Respiratory failure [Recovering/Resolving]
  - Stevens-Johnson syndrome [Recovering/Resolving]
